FAERS Safety Report 10829829 (Version 1)
Quarter: 2015Q1

REPORT INFORMATION
  Report Type: Report from Study
  Country: US (occurrence: US)
  Receive Date: 20150219
  Receipt Date: 20150219
  Transmission Date: 20150721
  Serious: Yes (Other)
  Sender: FDA-Public Use
  Company Number: US-ABBVIE-14P-163-1188263-00

PATIENT
  Age: 51 Year
  Sex: Female

DRUGS (1)
  1. HUMIRA [Suspect]
     Active Substance: ADALIMUMAB
     Indication: CROHN^S DISEASE
     Dates: start: 2009

REACTIONS (10)
  - Uterine dilation and curettage [Not Recovered/Not Resolved]
  - Injection site erythema [Unknown]
  - Diarrhoea [Unknown]
  - Injection site pain [Unknown]
  - Wrong technique in drug usage process [Unknown]
  - Incorrect dose administered [Unknown]
  - Inappropriate schedule of drug administration [Unknown]
  - Crohn^s disease [Recovered/Resolved]
  - Injection site pain [Unknown]
  - Menstrual disorder [Unknown]

NARRATIVE: CASE EVENT DATE: 2009
